FAERS Safety Report 25331554 (Version 2)
Quarter: 2025Q2

REPORT INFORMATION
  Report Type: Spontaneous
  Country: US (occurrence: US)
  Receive Date: 20250519
  Receipt Date: 20250606
  Transmission Date: 20250717
  Serious: No
  Sender: CSL BEHRING
  Company Number: US-BEH-2025205121

PATIENT
  Sex: Female

DRUGS (4)
  1. HIZENTRA [Suspect]
     Active Substance: HUMAN IMMUNOGLOBULIN G
     Indication: Hypogammaglobulinaemia
     Dosage: 4 G, QW
     Route: 058
     Dates: start: 202501
  2. HIZENTRA [Suspect]
     Active Substance: HUMAN IMMUNOGLOBULIN G
     Dosage: 1 G, QW
     Route: 058
     Dates: start: 202501
  3. TYMLOS [Concomitant]
     Active Substance: ABALOPARATIDE
     Indication: Bone disorder
  4. METHOTREXATE [Concomitant]
     Active Substance: METHOTREXATE
     Indication: Rheumatoid arthritis

REACTIONS (8)
  - Decreased appetite [Unknown]
  - Peripheral swelling [Unknown]
  - Peripheral swelling [Unknown]
  - Joint swelling [Unknown]
  - Decreased appetite [Unknown]
  - Peripheral swelling [Unknown]
  - Headache [Unknown]
  - Swelling [Unknown]
